FAERS Safety Report 19091088 (Version 2)
Quarter: 2021Q2

REPORT INFORMATION
  Report Type: Spontaneous
  Country: US (occurrence: US)
  Receive Date: 20210405
  Receipt Date: 20210419
  Transmission Date: 20210717
  Serious: No
  Sender: FDA-Public Use
  Company Number: US-JNJFOC-20210339853

PATIENT
  Sex: Male

DRUGS (1)
  1. WOMENS ROGAINE UNSCENTED [Suspect]
     Active Substance: MINOXIDIL
     Indication: ALOPECIA
     Dosage: AS DIRECTED
     Route: 065
     Dates: start: 20210308

REACTIONS (3)
  - Intentional product misuse [Unknown]
  - Product use issue [Unknown]
  - Application site hypersensitivity [Recovered/Resolved]

NARRATIVE: CASE EVENT DATE: 20210308
